FAERS Safety Report 5977470-0 (Version None)
Quarter: 2008Q4

REPORT INFORMATION
  Report Type: 
  Country: None (occurrence: None)
  Receive Date: 20081203
  Receipt Date: 20081201
  Transmission Date: 20090506
  Serious: Yes (Death)
  Sender: FDA-Public Use
  Company Number: D0059701A

PATIENT
  Sex: Male

DRUGS (1)
  1. HYCAMTIN [Suspect]
     Dosage: 1.25MGM2 PER DAY
     Route: 065

REACTIONS (1)
  - FEBRILE NEUTROPENIA [None]
